FAERS Safety Report 8953088 (Version 1)
Quarter: 2012Q4

REPORT INFORMATION
  Report Type: Report from Study
  Country: GB (occurrence: GB)
  Receive Date: 20121205
  Receipt Date: 20121205
  Transmission Date: 20130627
  Serious: Yes (Other)
  Sender: FDA-Public Use
  Company Number: GB-JNJFOC-20121201628

PATIENT
  Age: 74 Year
  Sex: Female
  Weight: 76 kg

DRUGS (3)
  1. REMICADE [Suspect]
     Indication: RHEUMATOID ARTHRITIS
     Route: 042
     Dates: start: 20050117, end: 20050131
  2. CORTICOSTEROID NOS [Concomitant]
  3. METHOTREXATE [Concomitant]

REACTIONS (1)
  - Skin cancer [Unknown]
